FAERS Safety Report 5480635-8 (Version None)
Quarter: 2007Q4

REPORT INFORMATION
  Report Type: 
  Country: None (occurrence: None)
  Receive Date: 20071009
  Receipt Date: 20070927
  Transmission Date: 20080405
  Serious: Yes (Hospitalization)
  Sender: FDA-Public Use
  Company Number: US-WYE-H00420807

PATIENT
  Sex: Male
  Weight: 99 kg

DRUGS (2)
  1. CEFTRIAXONE [Suspect]
     Indication: APPENDICITIS
     Dosage: 2 G DAILY
     Route: 042
     Dates: start: 20070924, end: 20070927
  2. METRONIDAZOLE [Suspect]
     Indication: APPENDICITIS
     Dosage: 500 MG DAILY
     Dates: start: 20070924, end: 20070927

REACTIONS (1)
  - ACID BASE BALANCE ABNORMAL [None]
